FAERS Safety Report 4643570-0 (Version None)
Quarter: 2005Q2

REPORT INFORMATION
  Report Type: 
  Country: None (occurrence: None)
  Receive Date: 20050425
  Receipt Date: 20050412
  Transmission Date: 20051028
  Serious: Yes (Hospitalization, Other)
  Sender: FDA-Public Use
  Company Number: PHNU2005DE01607

PATIENT

DRUGS (1)
  1. LAMISIL [Suspect]
     Indication: NAIL TINEA
     Dosage: 250 MG, QD
     Route: 048
     Dates: start: 20040601, end: 20040901

REACTIONS (14)
  - ANOREXIA [None]
  - ARTHRALGIA [None]
  - BLOOD SODIUM DECREASED [None]
  - BONE PAIN [None]
  - DEPRESSION [None]
  - DIFFICULTY IN WALKING [None]
  - FATIGUE [None]
  - INSOMNIA [None]
  - LISTLESS [None]
  - MUSCLE SPASMS [None]
  - MYALGIA [None]
  - NEURALGIA [None]
  - PARAESTHESIA [None]
  - RESTLESSNESS [None]
